FAERS Safety Report 15128743 (Version 2)
Quarter: 2018Q3

REPORT INFORMATION
  Report Type: Spontaneous
  Country: DK (occurrence: DK)
  Receive Date: 20180711
  Receipt Date: 20180723
  Transmission Date: 20181010
  Serious: Yes (Other)
  Sender: FDA-Public Use
  Company Number: DK-ROCHE-2151837

PATIENT
  Age: 75 Year
  Sex: Female
  Weight: 74 kg

DRUGS (7)
  1. ENALAPRIL [Concomitant]
     Active Substance: ENALAPRIL
     Indication: HYPERTENSION
     Route: 048
  2. DESLORATADIN [Concomitant]
     Active Substance: DESLORATADINE
     Indication: HYPERSENSITIVITY
     Route: 048
  3. ERIVEDGE [Suspect]
     Active Substance: VISMODEGIB
     Indication: SKIN CANCER
     Route: 065
     Dates: start: 2018, end: 201807
  4. LITAREX [Concomitant]
     Active Substance: LITHIUM CITRATE
     Indication: DEPRESSION
     Route: 048
  5. VISCOTEARS LIQUID GEL [Concomitant]
     Indication: DRY EYE
     Dosage: IF NEEDED
     Route: 047
  6. SIMVASTATIN. [Suspect]
     Active Substance: SIMVASTATIN
     Indication: BLOOD CHOLESTEROL INCREASED
     Route: 048
  7. ANTISTINA?PRIVIN [Concomitant]
     Indication: HYPERSENSITIVITY
     Dosage: 1 DROP*3 DAILY
     Route: 047

REACTIONS (1)
  - Hepatic enzyme increased [Not Recovered/Not Resolved]

NARRATIVE: CASE EVENT DATE: 20180704
